FAERS Safety Report 9444370 (Version 4)
Quarter: 2013Q4

REPORT INFORMATION
  Report Type: Spontaneous
  Country: IT (occurrence: IT)
  Receive Date: 20130807
  Receipt Date: 20131016
  Transmission Date: 20140711
  Serious: Yes (Hospitalization)
  Sender: FDA-Public Use
  Company Number: IT-AMGEN-ITASP2013054624

PATIENT
  Age: 47 Year
  Sex: Male

DRUGS (5)
  1. NEULASTA [Suspect]
     Indication: B-CELL LYMPHOMA
     Dosage: 6 MG, ONE TIME DOSE, TOTAL
     Route: 058
     Dates: start: 20130610, end: 20130610
  2. METHOTREXATE [Concomitant]
     Indication: B-CELL LYMPHOMA
     Dosage: UNK
     Dates: start: 20130606, end: 20130606
  3. ARA-C [Concomitant]
     Indication: B-CELL LYMPHOMA
     Dosage: UNK
     Dates: start: 20130607, end: 20130608
  4. RITUXIMAB [Concomitant]
     Indication: B-CELL LYMPHOMA
     Dosage: UNK
     Dates: start: 20130609, end: 20130609
  5. DEXAMETHASONE [Concomitant]
     Indication: B-CELL LYMPHOMA
     Dosage: UNK
     Dates: start: 20130606, end: 20130609

REACTIONS (1)
  - Eosinophilia [Recovered/Resolved]
